FAERS Safety Report 5664026-2 (Version None)
Quarter: 2008Q1

REPORT INFORMATION
  Report Type: 
  Country: None (occurrence: None)
  Receive Date: 20080314
  Receipt Date: 20080305
  Transmission Date: 20080703
  Serious: Yes (Other)
  Sender: FDA-Public Use
  Company Number: PL-BRISTOL-MYERS SQUIBB COMPANY-14112981

PATIENT
  Age: 37 Year
  Sex: Female

DRUGS (6)
  1. ENDOXAN [Suspect]
     Indication: CHRONIC LYMPHOCYTIC LEUKAEMIA
     Dosage: LOT# 5K501E;5K500A;5K505C.DISCONTINUED ON 03JUL06.
     Route: 042
     Dates: start: 20060201, end: 20060607
  2. FLUDARABINE [Suspect]
     Indication: CHRONIC LYMPHOCYTIC LEUKAEMIA
     Dosage: LOT#54237G.DISCONTINUED ON 03JUL06.
     Route: 042
     Dates: start: 20060201, end: 20060607
  3. FILGRASTIM [Concomitant]
     Dosage: 16-MAR-2006 TO 20-MAR-2006; 09-APR-2006 TO 01-MAY-2006; 10-MAY-2006 TO 14-MAY-2006
     Dates: start: 20060316, end: 20060514
  4. TRI-MINULET [Concomitant]
     Dosage: DOSAGE FORM=TABLET
     Dates: start: 20060122
  5. ACYCLOVIR [Concomitant]
     Dates: start: 20060201
  6. CO-TRIMOXAZOLE [Concomitant]
     Dates: start: 20060410

REACTIONS (1)
  - LEUKOPENIA [None]
